FAERS Safety Report 10900497 (Version 2)
Quarter: 2015Q1

REPORT INFORMATION
  Report Type: Spontaneous
  Country: ES (occurrence: None)
  Receive Date: 20150303
  Receipt Date: 20150311
  Transmission Date: 20150721
  Serious: Yes (Other)
  Sender: FDA-Public Use
  Company Number: FK201501015

PATIENT
  Sex: Female

DRUGS (5)
  1. CARBON DIOXIDE. [Concomitant]
     Active Substance: CARBON DIOXIDE
  2. IMIQUIMOD (IMIQUIMOD) (IMIQUIMOD) [Suspect]
     Active Substance: IMIQUIMOD
     Indication: POROKERATOSIS
     Dosage: 2 COURSES FOR 6 WEEKS
     Dates: start: 2008
  3. BETAMETHASONE W/CALACIPOTRIOL [Suspect]
     Active Substance: BETAMETHASONE DIPROPIONATE\CALCIPOTRIENE HYDRATE
     Dosage: 50 UG/G AND 0.5 MG/G
     Route: 061
     Dates: start: 2008
  4. FLUOROURACIL. [Suspect]
     Active Substance: FLUOROURACIL
     Indication: POROKERATOSIS
     Dates: start: 2008
  5. AMINOLEVULINIC ACID [Concomitant]
     Active Substance: AMINOLEVULINIC ACID
     Indication: POROKERATOSIS
     Dosage: 2 COURSES FOR 6 WEEKS
     Dates: start: 2008

REACTIONS (1)
  - Skin hypopigmentation [None]
